FAERS Safety Report 5047937-0 (Version None)
Quarter: 2006Q3

REPORT INFORMATION
  Report Type: 
  Country: None (occurrence: None)
  Receive Date: 20060703
  Receipt Date: 20060221
  Transmission Date: 20061208
  Serious: Yes (Hospitalization, Other)
  Sender: FDA-Public Use
  Company Number: 2006RL000228

PATIENT
  Sex: Male

DRUGS (1)
  1. RYTHMOL [Suspect]
     Dosage: 150 MG PO
     Route: 048

REACTIONS (2)
  - ELECTROCARDIOGRAM QT PROLONGED [None]
  - OVERDOSE [None]
